FAERS Safety Report 5214773-1 (Version None)
Quarter: 2007Q1

REPORT INFORMATION
  Report Type: 
  Country: None (occurrence: None)
  Receive Date: 20070122
  Receipt Date: 20070122
  Transmission Date: 20070707
  Serious: Yes (Other)
  Sender: FDA-Public Use
  Company Number: None

PATIENT
  Age: 55 Year
  Sex: Female
  Weight: 75.2971 kg

DRUGS (1)
  1. SERTRALINE HCL 100 MG GREENSTONE BRAND [Suspect]
     Indication: DEPRESSION
     Dosage: 150 MG  1X DAY PO
     Route: 048
     Dates: start: 20061201, end: 20070101

REACTIONS (5)
  - DRUG INEFFECTIVE [None]
  - PHARMACEUTICAL PRODUCT COMPLAINT [None]
  - PRURITUS [None]
  - THERAPEUTIC RESPONSE UNEXPECTED WITH DRUG SUBSTITUTION [None]
  - TREMOR [None]
